FAERS Safety Report 6577609-2 (Version None)
Quarter: 2010Q1

REPORT INFORMATION
  Report Type: 
  Country: None (occurrence: None)
  Receive Date: 20100211
  Receipt Date: 20100201
  Transmission Date: 20100710
  Serious: Yes (Hospitalization)
  Sender: FDA-Public Use
  Company Number: PHHY2010US05433

PATIENT
  Sex: Female
  Weight: 94.8 kg

DRUGS (1)
  1. EXJADE [Suspect]
     Dosage: 200 MG DAILY
     Route: 048
     Dates: start: 20091210, end: 20100112

REACTIONS (1)
  - BLOOD PRESSURE ABNORMAL [None]
